FAERS Safety Report 22097141 (Version 1)
Quarter: 2023Q1

REPORT INFORMATION
  Report Type: Spontaneous
  Country: EC (occurrence: EC)
  Receive Date: 20230315
  Receipt Date: 20230315
  Transmission Date: 20230418
  Serious: Yes (Death)
  Sender: FDA-Public Use
  Company Number: EC-002147023-NVSC2023EC059301

PATIENT

DRUGS (3)
  1. ELTROMBOPAG OLAMINE [Suspect]
     Active Substance: ELTROMBOPAG OLAMINE
     Indication: Product used for unknown indication
     Dosage: 1 DOSAGE FORM, QD (1 X 50 MG)
     Route: 065
     Dates: start: 20230106
  2. EPOETIN BETA [Concomitant]
     Active Substance: ERYTHROPOIETIN
     Indication: Product used for unknown indication
     Dosage: 1 X 30^000 IU 1^ OC, 7QD
     Route: 065
  3. VIDAZA [Concomitant]
     Active Substance: AZACITIDINE
     Indication: Product used for unknown indication
     Dosage: 100 MG, ONCE/SINGLE (LYOPHILIZED POWDER)
     Route: 065

REACTIONS (1)
  - Death [Fatal]
